FAERS Safety Report 22390448 (Version 2)
Quarter: 2023Q2

REPORT INFORMATION
  Report Type: Spontaneous
  Country: AU (occurrence: AU)
  Receive Date: 20230531
  Receipt Date: 20230605
  Transmission Date: 20230722
  Serious: Yes (Other)
  Sender: FDA-Public Use
  Company Number: AU-MYLANLABS-2023M1020984

PATIENT
  Age: 19 Year
  Sex: Female
  Weight: 60 kg

DRUGS (4)
  1. CLOZARIL [Suspect]
     Active Substance: CLOZAPINE
     Indication: Schizophrenia
     Dosage: UNK
     Route: 048
     Dates: start: 20230214
  2. OLANZAPINE [Concomitant]
     Active Substance: OLANZAPINE
     Dosage: 300 MILLIGRAM (FORTNIGHTLY)
     Route: 030
  3. CHOLECALCIFEROL [Concomitant]
     Active Substance: CHOLECALCIFEROL
     Dosage: 25 MICROGRAM
     Route: 065
  4. MELATONIN [Concomitant]
     Active Substance: MELATONIN
     Dosage: 2 MILLIGRAM, QD (NOCTE)
     Route: 065

REACTIONS (21)
  - Neutropenia [Recovered/Resolved]
  - Blood bicarbonate decreased [Recovered/Resolved]
  - Blood alkaline phosphatase increased [Recovered/Resolved]
  - Blood prolactin increased [Recovered/Resolved]
  - Vitamin D decreased [Unknown]
  - Blood uric acid increased [Recovered/Resolved]
  - Anion gap increased [Unknown]
  - Blood albumin increased [Recovered/Resolved]
  - White blood cell count decreased [Recovered/Resolved]
  - Eosinophil count increased [Recovered/Resolved]
  - Blood glucose decreased [Recovered/Resolved]
  - Haemoglobin decreased [Recovered/Resolved]
  - Lymphocyte count decreased [Recovered/Resolved]
  - Platelet count decreased [Recovered/Resolved]
  - Blood creatinine increased [Recovered/Resolved]
  - Blood cholesterol increased [Not Recovered/Not Resolved]
  - Blood triglycerides increased [Recovered/Resolved]
  - Low density lipoprotein increased [Not Recovered/Not Resolved]
  - Total cholesterol/HDL ratio increased [Recovered/Resolved]
  - Non-high-density lipoprotein cholesterol increased [Recovered/Resolved]
  - Gastroenteritis viral [Unknown]

NARRATIVE: CASE EVENT DATE: 20230220
